FAERS Safety Report 5582684-8 (Version None)
Quarter: 2008Q1

REPORT INFORMATION
  Report Type: 
  Country: None (occurrence: None)
  Receive Date: 20080107
  Receipt Date: 20080102
  Transmission Date: 20080703
  Serious: Yes (Other)
  Sender: FDA-Public Use
  Company Number: US-ELI_LILLY_AND_COMPANY-US200710007163

PATIENT
  Age: 60 Year
  Sex: Female

DRUGS (7)
  1. EVISTA [Suspect]
     Indication: OSTEOPOROSIS
     Dosage: 60 MG, UNK
     Route: 048
     Dates: start: 20050601, end: 20050801
  2. SECTRAL [Concomitant]
     Dosage: 400 MG, 2/D
  3. SYNTHROID [Concomitant]
     Dosage: 0.05 MG, DAILY (1/D)
  4. MAXZIDE [Concomitant]
     Dosage: 18.75 D/F, DAILY (1/D)
  5. CITRACAL [Concomitant]
     Dosage: 315 MG/KG, 2/D
  6. PRILOSEC [Concomitant]
     Dosage: 20 MG, DAILY (1/D)
  7. PRAVACHOL [Concomitant]
     Dosage: 10 MG, EACH EVENING

REACTIONS (1)
  - TRANSIENT ISCHAEMIC ATTACK [None]
